FAERS Safety Report 8451237-6 (Version None)
Quarter: 2012Q2

REPORT INFORMATION
  Report Type: 
  Country: None (occurrence: None)
  Receive Date: 20120620
  Receipt Date: 20120405
  Transmission Date: 20120825
  Serious: No
  Sender: FDA-Public Use
  Company Number: US-VERTEX PHARMACEUTICALS INC.-AE-2012-001278

PATIENT
  Sex: Female
  Weight: 85.806 kg

DRUGS (9)
  1. CELEXA [Concomitant]
     Route: 048
  2. INCIVEK [Suspect]
     Indication: HEPATITIS C
     Route: 048
     Dates: start: 20120102
  3. ZEGERID [Concomitant]
  4. PROMETHAZINE [Concomitant]
     Route: 048
  5. BENICAR [Concomitant]
  6. LORTAB [Concomitant]
     Route: 048
  7. KLONOPIN [Concomitant]
  8. RIBAVIRIN [Concomitant]
     Indication: HEPATITIS C
     Route: 048
     Dates: start: 20120102
  9. PEGASYS [Concomitant]
     Indication: HEPATITIS C
     Route: 058
     Dates: start: 20120102

REACTIONS (5)
  - ANORECTAL DISCOMFORT [None]
  - ANAL PRURITUS [None]
  - DIARRHOEA [None]
  - PAINFUL DEFAECATION [None]
  - PROCTITIS [None]
